FAERS Safety Report 23548961 (Version 2)
Quarter: 2024Q1

REPORT INFORMATION
  Report Type: Report from Study
  Country: DE (occurrence: DE)
  Receive Date: 20240221
  Receipt Date: 20240306
  Transmission Date: 20240409
  Serious: Yes (Hospitalization)
  Sender: FDA-Public Use
  Company Number: DE-PFIZER INC-PV202400016780

PATIENT
  Age: 2 Year
  Sex: Female
  Weight: 8.1 kg

DRUGS (2)
  1. ACETAMINOPHEN [Suspect]
     Active Substance: ACETAMINOPHEN
     Indication: Product used for unknown indication
     Dosage: PRN, MAX DOSE 600, AS NEEDED
     Route: 065
  2. GENOTROPIN [Suspect]
     Active Substance: SOMATROPIN
     Indication: Prader-Willi syndrome
     Dosage: 0.3 MILLIGRAM
     Route: 058
     Dates: start: 20240123, end: 20240123

REACTIONS (4)
  - Hypoacusis [Recovered/Resolved]
  - Obstructive sleep apnoea syndrome [Recovering/Resolving]
  - Infection [Recovering/Resolving]
  - Tympanic membrane disorder [Recovered/Resolved]

NARRATIVE: CASE EVENT DATE: 20240123
